FAERS Safety Report 24193595 (Version 1)
Quarter: 2024Q3

REPORT INFORMATION
  Report Type: Spontaneous
  Country: IN (occurrence: IN)
  Receive Date: 20240809
  Receipt Date: 20240809
  Transmission Date: 20241016
  Serious: Yes (Other)
  Sender: RANBAXY
  Company Number: IN-SUN PHARMACEUTICAL INDUSTRIES LTD-2024R1-461552

PATIENT
  Age: 29 Year
  Sex: Female

DRUGS (5)
  1. ESTRADIOL [Suspect]
     Active Substance: ESTRADIOL
     Indication: Hormone therapy
     Dosage: 0.035 MILLIGRAM
     Route: 065
  2. ESTRADIOL [Suspect]
     Active Substance: ESTRADIOL
     Indication: Acne
  3. ISOTRETINOIN [Suspect]
     Active Substance: ISOTRETINOIN
     Indication: Hormone therapy
     Dosage: UNK
     Route: 065
  4. CYPROTERONE [Suspect]
     Active Substance: CYPROTERONE
     Indication: Hormone therapy
     Dosage: 2 MILLIGRAM
     Route: 065
  5. CYPROTERONE [Suspect]
     Active Substance: CYPROTERONE
     Indication: Acne

REACTIONS (1)
  - Meibomian gland dysfunction [Not Recovered/Not Resolved]
